FAERS Safety Report 17979322 (Version 1)
Quarter: 2020Q3

REPORT INFORMATION
  Report Type: Report from Study
  Country: CZ (occurrence: CZ)
  Receive Date: 20200703
  Receipt Date: 20200703
  Transmission Date: 20201103
  Serious: Yes (Hospitalization)
  Sender: FDA-Public Use
  Company Number: CZ-SA-2019SA027367

PATIENT

DRUGS (31)
  1. POMALIDOMIDE [Suspect]
     Active Substance: POMALIDOMIDE
     Dosage: 4 MG, QD
     Route: 048
     Dates: start: 20171006, end: 20171006
  2. HYDROCHLOROTHIAZID [Concomitant]
     Active Substance: HYDROCHLOROTHIAZIDE
     Dosage: UNK
     Route: 048
     Dates: start: 20190110
  3. TEZEO [Concomitant]
     Active Substance: TELMISARTAN
     Dosage: UNK UNK, UNK
     Route: 048
     Dates: start: 20171129, end: 20190426
  4. ACC LONG [Concomitant]
     Active Substance: ACETYLCYSTEINE
     Dosage: UNK UNK, UNK
     Route: 048
     Dates: start: 20180309
  5. ALVESCO [Concomitant]
     Active Substance: CICLESONIDE
     Dosage: UNK UNK, UNK
     Route: 055
     Dates: start: 20180319
  6. DITHIADEN [Concomitant]
     Active Substance: BISULEPIN
     Indication: PROPHYLAXIS
     Dosage: 1 MG, 1X
     Route: 042
     Dates: start: 20190118, end: 20190118
  7. FRAXIPARINE [Concomitant]
     Active Substance: NADROPARIN CALCIUM
     Indication: PROPHYLAXIS
     Dosage: UNK UNK, QD
     Route: 058
     Dates: start: 20170725
  8. VALACICLOVIR [Concomitant]
     Active Substance: VALACYCLOVIR HYDROCHLORIDE
     Indication: PROPHYLAXIS
     Dosage: UNK UNK, UNK
     Route: 048
     Dates: start: 20171201
  9. CITALOPRAM [Concomitant]
     Active Substance: CITALOPRAM HYDROBROMIDE
     Dosage: UNK UNK, UNK
     Route: 048
     Dates: start: 2009
  10. ATROVENT [Concomitant]
     Active Substance: IPRATROPIUM BROMIDE
     Dosage: UNK UNK, UNK
     Route: 048
     Dates: start: 20171201
  11. HIZENTRA [Concomitant]
     Active Substance: HUMAN IMMUNOGLOBULIN G
     Indication: PROPHYLAXIS
     Dosage: UNK UNK, UNK
     Route: 058
     Dates: start: 20171003
  12. MICTONORM [Concomitant]
     Active Substance: PROPIVERINE HYDROCHLORIDE
     Indication: PROPHYLAXIS
     Dosage: UNK UNK, UNK
     Route: 048
     Dates: start: 20180710
  13. DEXAMETHASONE. [Suspect]
     Active Substance: DEXAMETHASONE
     Indication: PLASMA CELL MYELOMA
     Dosage: 8 MG, QW
     Route: 048
     Dates: start: 20190125, end: 20190125
  14. PARALEN [PARACETAMOL] [Concomitant]
     Indication: PROPHYLAXIS
     Dosage: 1000 MG, 1X
     Route: 048
     Dates: start: 20190118, end: 20190118
  15. RANITAL [RANITIDINE] [Concomitant]
     Indication: PROPHYLAXIS
     Dosage: 50 MG, 1X
     Route: 042
     Dates: start: 20190118, end: 20190118
  16. MEGACE [Concomitant]
     Active Substance: MEGESTROL ACETATE
     Dosage: UNK
     Route: 048
     Dates: start: 20171121
  17. ERDOMED [Concomitant]
     Active Substance: ERDOSTEINE
     Dosage: UNK
     Route: 048
     Dates: start: 20181207
  18. ISATUXIMAB [Suspect]
     Active Substance: ISATUXIMAB
     Indication: PLASMA CELL MYELOMA
     Dosage: 10 MG/KG, QOW
     Route: 042
  19. DEXAMETHASONE. [Suspect]
     Active Substance: DEXAMETHASONE
     Dosage: 40 MG, QW
     Route: 048
     Dates: start: 20171006, end: 20171006
  20. PARALEN [PARACETAMOL] [Concomitant]
     Dosage: UNK
     Route: 048
     Dates: start: 201606
  21. BETALOC [METOPROLOL SUCCINATE] [Concomitant]
     Dosage: 1UNK UNK, UNK
     Route: 048
     Dates: start: 1996
  22. MEGACE [Concomitant]
     Active Substance: MEGESTROL ACETATE
     Indication: PROPHYLAXIS
     Dosage: UNK UNK, UNK
     Route: 048
     Dates: start: 20170331
  23. ISATUXIMAB [Suspect]
     Active Substance: ISATUXIMAB
     Dosage: 10 MG/KG, QW
     Route: 042
     Dates: start: 20171006, end: 20171006
  24. POMALIDOMIDE [Suspect]
     Active Substance: POMALIDOMIDE
     Indication: PLASMA CELL MYELOMA
     Dosage: 2 MG, QD
     Route: 048
     Dates: start: 20190104, end: 20190124
  25. ERDOMED [Concomitant]
     Active Substance: ERDOSTEINE
     Dosage: UNK UNK, UNK
     Route: 048
     Dates: start: 20180619
  26. LEVOFLOXACIN. [Concomitant]
     Active Substance: LEVOFLOXACIN
     Dosage: UNK UNK, UNK
     Route: 048
     Dates: start: 20180629
  27. HYDROCHLOROTHIAZID [Concomitant]
     Active Substance: HYDROCHLOROTHIAZIDE
     Indication: PROPHYLAXIS
     Dosage: UNK UNK, UNK
     Route: 048
     Dates: start: 20171125
  28. CIPRALEX [Concomitant]
     Active Substance: ESCITALOPRAM OXALATE
     Indication: PROPHYLAXIS
     Dosage: UNK UNK, UNK
     Route: 048
     Dates: start: 1990
  29. TRANSTEC [Concomitant]
     Active Substance: BUPRENORPHINE
     Indication: PROPHYLAXIS
     Dosage: UNK UNK, UNK
     Route: 062
     Dates: start: 201606
  30. NIMESIL [Concomitant]
     Active Substance: NIMESULIDE
     Indication: PROPHYLAXIS
     Dosage: UNK UNK, UNK
     Route: 048
     Dates: start: 201606
  31. MAGNESII LACTICI [Concomitant]
     Active Substance: MAGNESIUM LACTATE
     Indication: PROPHYLAXIS
     Dosage: UNK UNK, UNK
     Route: 048
     Dates: start: 20171201

REACTIONS (1)
  - Bronchitis [Recovered/Resolved]

NARRATIVE: CASE EVENT DATE: 20190129
